FAERS Safety Report 6690049-0 (Version None)
Quarter: 2010Q2

REPORT INFORMATION
  Report Type: 
  Country: None (occurrence: None)
  Receive Date: 20100421
  Receipt Date: 20100413
  Transmission Date: 20101027
  Serious: Yes (Disabling)
  Sender: FDA-Public Use
  Company Number: PHHY2010IT23809

PATIENT
  Sex: Female

DRUGS (4)
  1. ZOMETA [Suspect]
     Indication: METASTASES TO BONE
     Dosage: 4 MG EVERY 28 DAYS
     Route: 042
     Dates: start: 20081006, end: 20090716
  2. AVASTIN [Concomitant]
     Dosage: 8 CYCLES
     Dates: start: 20081027
  3. AVASTIN [Concomitant]
     Dosage: 2 CYCLES
     Dates: start: 20090709
  4. PACLITAXEL [Concomitant]
     Dosage: 8 CYCLES
     Dates: start: 20081027

REACTIONS (1)
  - OSTEONECROSIS [None]
